FAERS Safety Report 20883815 (Version 1)
Quarter: 2022Q2

REPORT INFORMATION
  Report Type: Spontaneous
  Country: US (occurrence: US)
  Receive Date: 20220527
  Receipt Date: 20220527
  Transmission Date: 20220721
  Serious: Yes (Other)
  Sender: FDA-Public Use
  Company Number: US-SANOFI-01112498

PATIENT
  Age: 78 Year
  Sex: Male

DRUGS (1)
  1. ELOXATIN [Suspect]
     Active Substance: OXALIPLATIN
     Indication: Oesophageal carcinoma
     Dosage: UNK
     Dates: end: 2022

REACTIONS (2)
  - Haemorrhage [Unknown]
  - Skin injury [Unknown]

NARRATIVE: CASE EVENT DATE: 20220519
